FAERS Safety Report 9206770 (Version 2)
Quarter: 2013Q2

REPORT INFORMATION
  Report Type: Spontaneous
  Country: None (occurrence: US)
  Receive Date: 20130403
  Receipt Date: 20130417
  Transmission Date: 20140414
  Serious: Yes (Other)
  Sender: FDA-Public Use
  Company Number: US-COVIDIEN/TYCO HEALTHCARE/MALLINCKRODT-T201301384

PATIENT
  Sex: Male

DRUGS (11)
  1. MORPHINE EXTENDED-RELEASE [Suspect]
     Indication: ARTHRALGIA
     Dosage: 15 MG, BID
     Route: 048
     Dates: start: 201206, end: 201212
  2. MORPHINE EXTENDED-RELEASE [Suspect]
     Dosage: 1 TABLET EVERY OTHER DAY
     Route: 048
     Dates: start: 201301
  3. MORPHINE EXTENDED-RELEASE [Suspect]
     Dosage: 1 TABLET EVERY DAY
     Route: 048
  4. MORPHINE EXTENDED-RELEASE [Suspect]
     Dosage: 2 TABLETS IN A 24 HOUR PERIOD
     Route: 048
  5. ALBUTEROL /00139501/ [Suspect]
     Indication: CHRONIC OBSTRUCTIVE PULMONARY DISEASE
     Dosage: UNK, NEBULIZER Q 6 HOURS
     Dates: start: 2012, end: 201212
  6. ACETAMINOPHEN [Concomitant]
     Indication: PAIN
     Dosage: 500 MG, 2-6/DAY
  7. GABAPENTIN [Concomitant]
     Indication: ANXIETY
     Dosage: 300 MG, QHS
  8. GABAPENTIN [Concomitant]
     Indication: PANIC ATTACK
  9. GABAPENTIN [Concomitant]
     Indication: PAIN IN EXTREMITY
  10. CLONAZEPAM [Concomitant]
     Dosage: UNK
  11. ALBUTEROL                          /00139501/ [Concomitant]
     Indication: CHRONIC OBSTRUCTIVE PULMONARY DISEASE
     Dosage: UNK, 2 PUFFS QID

REACTIONS (10)
  - Apnoea [Recovered/Resolved]
  - Chest pain [Not Recovered/Not Resolved]
  - Pain [Recovering/Resolving]
  - Cold sweat [Recovered/Resolved]
  - Reaction to drug excipients [Unknown]
  - Dyspnoea [Not Recovered/Not Resolved]
  - Drug ineffective [Not Recovered/Not Resolved]
  - Headache [Not Recovered/Not Resolved]
  - Nausea [Not Recovered/Not Resolved]
  - Insomnia [Recovering/Resolving]
